FAERS Safety Report 7700412-4 (Version None)
Quarter: 2011Q3

REPORT INFORMATION
  Report Type: 
  Country: None (occurrence: None)
  Receive Date: 20110822
  Receipt Date: 20110808
  Transmission Date: 20111222
  Serious: Yes (Other)
  Sender: FDA-Public Use
  Company Number: JP-ELI_LILLY_AND_COMPANY-JP201108002723

PATIENT
  Age: 75 Year
  Sex: Female

DRUGS (2)
  1. FORTEO [Suspect]
     Dosage: UNK
     Route: 058
     Dates: start: 20110701
  2. FORTEO [Suspect]
     Dosage: UNK
     Route: 058
     Dates: end: 20110701

REACTIONS (3)
  - ECZEMA [None]
  - MUSCLE SPASMS [None]
  - EYE OPERATION [None]
